FAERS Safety Report 24035574 (Version 3)
Quarter: 2024Q3

REPORT INFORMATION
  Report Type: Spontaneous
  Country: IT (occurrence: IT)
  Receive Date: 20240701
  Receipt Date: 20240723
  Transmission Date: 20241017
  Serious: Yes (Other)
  Sender: AMERICAN REGENT
  Company Number: IT-AMERICAN REGENT INC-2024002494

PATIENT
  Age: 77 Year
  Sex: Female
  Weight: 75 kg

DRUGS (2)
  1. FERINJECT [Suspect]
     Active Substance: FERRIC CARBOXYMALTOSE
     Indication: Iron deficiency
     Dosage: DILUTED IN 250 ML SALINE SOLUTION 1 GRAM, 1 IN 2 CYCLICAL
     Dates: start: 20240610, end: 20240610
  2. FERINJECT [Suspect]
     Active Substance: FERRIC CARBOXYMALTOSE
     Dosage: DILUTED IN 100 ML SALINE SOLUTION (500 MG,1 IN 2 CYCLICAL)
     Dates: start: 20240617, end: 20240617

REACTIONS (1)
  - Generalised tonic-clonic seizure [Recovering/Resolving]

NARRATIVE: CASE EVENT DATE: 20240617
